FAERS Safety Report 5596880-7 (Version None)
Quarter: 2008Q1

REPORT INFORMATION
  Report Type: 
  Country: None (occurrence: None)
  Receive Date: 20080119
  Receipt Date: 20080109
  Transmission Date: 20080703
  Serious: Yes (Hospitalization)
  Sender: FDA-Public Use
  Company Number: FR-PFIZER INC-2008005073

PATIENT
  Age: 42 Year
  Sex: Male

DRUGS (2)
  1. CHANTIX [Suspect]
     Indication: SMOKING CESSATION THERAPY
     Route: 048
     Dates: start: 20071105, end: 20071111
  2. LITHIUM CARBONATE [Concomitant]

REACTIONS (2)
  - AGITATION [None]
  - DELIRIUM [None]
